FAERS Safety Report 20543087 (Version 1)
Quarter: 2022Q1

REPORT INFORMATION
  Report Type: Spontaneous
  Country: US (occurrence: US)
  Receive Date: 20220302
  Receipt Date: 20220302
  Transmission Date: 20220424
  Serious: No
  Sender: FDA-Public Use
  Company Number: US-PFIZER INC-2021198351

PATIENT
  Age: 41 Year
  Sex: Male

DRUGS (3)
  1. XELJANZ [Suspect]
     Active Substance: TOFACITINIB CITRATE
     Indication: Crohn^s disease
     Dosage: 22 MG, DAILY
     Route: 048
  2. XELJANZ [Suspect]
     Active Substance: TOFACITINIB CITRATE
     Indication: Rectal haemorrhage
     Dosage: 10 MG, 2X/DAY
     Dates: start: 202004
  3. METHOTREXATE [Concomitant]
     Active Substance: METHOTREXATE
     Dosage: UNK
     Route: 058

REACTIONS (5)
  - Off label use [Unknown]
  - Off label use [Unknown]
  - Frequent bowel movements [Not Recovered/Not Resolved]
  - Lipids increased [Unknown]
  - Colitis [Unknown]
